FAERS Safety Report 10223513 (Version 1)
Quarter: 2014Q2

REPORT INFORMATION
  Report Type: Spontaneous
  Country: US (occurrence: US)
  Receive Date: 20140609
  Receipt Date: 20140609
  Transmission Date: 20141212
  Serious: No
  Sender: FDA-Public Use
  Company Number: US-BIOGENIDEC-2014BI050691

PATIENT
  Age: 61 Year
  Sex: Female

DRUGS (11)
  1. TECFIDERA [Suspect]
     Indication: MULTIPLE SCLEROSIS
     Route: 048
     Dates: start: 20140402
  2. ADDERALL [Concomitant]
  3. AMANTADINE HCL [Concomitant]
  4. BONIVA [Concomitant]
  5. COUMADIN [Concomitant]
  6. ESGIC-PLUS [Concomitant]
  7. LEXAPRO [Concomitant]
  8. PRILOSEC [Concomitant]
  9. TRAZODONE HCL [Concomitant]
  10. ZANAFLEX [Concomitant]
  11. ZESTORETIC [Concomitant]

REACTIONS (3)
  - Gastrooesophageal reflux disease [Not Recovered/Not Resolved]
  - Urinary incontinence [Unknown]
  - Abdominal discomfort [Not Recovered/Not Resolved]
